FAERS Safety Report 6294446-7 (Version None)
Quarter: 2009Q3

REPORT INFORMATION
  Report Type: 
  Country: None (occurrence: None)
  Receive Date: 20090730
  Receipt Date: 20090720
  Transmission Date: 20100115
  Serious: Yes (Other)
  Sender: FDA-Public Use
  Company Number: 2009AP002971

PATIENT
  Sex: Female

DRUGS (1)
  1. MYCOPHENOLATE MOFETIL [Suspect]
     Indication: LUPUS NEPHRITIS
     Dosage: 500 MG

REACTIONS (11)
  - ARTHRALGIA [None]
  - DRUG INEFFECTIVE [None]
  - DRUG PRESCRIBING ERROR [None]
  - JOINT SWELLING [None]
  - LETHARGY [None]
  - PRESSURE OF SPEECH [None]
  - SCAR [None]
  - SKIN LESION [None]
  - SPEECH DISORDER [None]
  - THERAPEUTIC RESPONSE DECREASED [None]
  - THINKING ABNORMAL [None]
